FAERS Safety Report 8548850-4 (Version None)
Quarter: 2012Q3

REPORT INFORMATION
  Report Type: 
  Country: None (occurrence: None)
  Receive Date: 20120730
  Receipt Date: 20120722
  Transmission Date: 20120928
  Serious: Yes (Hospitalization, Other)
  Sender: FDA-Public Use
  Company Number: US-US-EMD SERONO, INC.-7132669

PATIENT
  Sex: Female

DRUGS (3)
  1. REBIF [Suspect]
     Indication: MULTIPLE SCLEROSIS
     Route: 058
     Dates: start: 20110525
  2. TYLENOL [Concomitant]
     Indication: PREMEDICATION
  3. LIDOCAINE [Concomitant]
     Indication: MUSCLE SPASMS

REACTIONS (16)
  - BLOOD COUNT ABNORMAL [None]
  - DIPLOPIA [None]
  - MUSCLE SPASMS [None]
  - MUSCULOSKELETAL PAIN [None]
  - TINNITUS [None]
  - INFLUENZA LIKE ILLNESS [None]
  - HEART RATE INCREASED [None]
  - VISION BLURRED [None]
  - FATIGUE [None]
  - LOSS OF CONSCIOUSNESS [None]
  - SENSATION OF HEAVINESS [None]
  - DYSPHAGIA [None]
  - HYPERTENSION [None]
  - PYREXIA [None]
  - INTERVERTEBRAL DISC DISORDER [None]
  - FALL [None]
